FAERS Safety Report 5733388-X (Version None)
Quarter: 2008Q2

REPORT INFORMATION
  Report Type: 
  Country: None (occurrence: None)
  Receive Date: 20080509
  Receipt Date: 20080501
  Transmission Date: 20081010
  Serious: Yes (Other)
  Sender: FDA-Public Use
  Company Number: TR-AVENTIS-200814072GDDC

PATIENT
  Age: 62 Year
  Sex: Female

DRUGS (4)
  1. LEFLUNOMIDE [Suspect]
     Dosage: DOSE: UNK
  2. METHOTREXATE [Suspect]
     Dosage: DOSE: UNK
  3. ETANERCEPT [Suspect]
  4. SULFASALAZINE [Concomitant]
     Dosage: DOSE: UNK

REACTIONS (1)
  - HEPATITIS C [None]
